FAERS Safety Report 6310143-3 (Version None)
Quarter: 2009Q3

REPORT INFORMATION
  Report Type: 
  Country: None (occurrence: None)
  Receive Date: 20090814
  Receipt Date: 20090803
  Transmission Date: 20100115
  Serious: Yes (Hospitalization)
  Sender: FDA-Public Use
  Company Number: US-JNJFOC-20090505637

PATIENT
  Sex: Female
  Weight: 50.8 kg

DRUGS (7)
  1. REMICADE [Suspect]
     Indication: RHEUMATOID ARTHRITIS
     Route: 042
  2. METHOTREXATE [Concomitant]
  3. PREDNISONE [Concomitant]
  4. NORVASC [Concomitant]
  5. FOLATE [Concomitant]
  6. CALCIUM [Concomitant]
  7. LABETALOL HCL [Concomitant]

REACTIONS (3)
  - DIVERTICULITIS [None]
  - FALL [None]
  - TIBIA FRACTURE [None]
